FAERS Safety Report 5147983-2 (Version None)
Quarter: 2006Q4

REPORT INFORMATION
  Report Type: 
  Country: None (occurrence: None)
  Receive Date: 20061110
  Receipt Date: 20061030
  Transmission Date: 20070319
  Serious: Yes (Other)
  Sender: FDA-Public Use
  Company Number: 2006GB01946

PATIENT
  Age: 39 Year
  Sex: Female
  Weight: 87.1 kg

DRUGS (1)
  1. SYMBICORT [Suspect]
     Dosage: 2 PUFFS TWICE DAILY
     Route: 055
     Dates: start: 20060721, end: 20060802

REACTIONS (1)
  - CHEST DISCOMFORT [None]
